FAERS Safety Report 19603116 (Version 1)
Quarter: 2021Q3

REPORT INFORMATION
  Report Type: Spontaneous
  Country: IT (occurrence: IT)
  Receive Date: 20210724
  Receipt Date: 20210724
  Transmission Date: 20211014
  Serious: No
  Sender: FDA-Public Use
  Company Number: IT-LUPIN PHARMACEUTICALS INC.-2021-12822

PATIENT
  Age: 2 Decade
  Sex: Female

DRUGS (4)
  1. CLOMIPRAMINE [Suspect]
     Active Substance: CLOMIPRAMINE
     Indication: 22Q11.2 DELETION SYNDROME
     Dosage: UNK UNK, BID, UP TO 15 MG/DIE
     Route: 065
  2. CLOZAPINE. [Concomitant]
     Active Substance: CLOZAPINE
     Indication: 22Q11.2 DELETION SYNDROME
     Dosage: UNK, INTRODUCED AT UNKNOWN DOSAGE
     Route: 065
  3. CLOZAPINE. [Concomitant]
     Active Substance: CLOZAPINE
     Dosage: UNK, PROGRESSIVE DOSAGE UP TO 200 MG/DIE
     Route: 065
  4. CLOZAPINE. [Concomitant]
     Active Substance: CLOZAPINE
     Dosage: 125 MILLIGRAM, QD, DOSE REDUCED
     Route: 065

REACTIONS (1)
  - Psychomotor hyperactivity [Unknown]
